FAERS Safety Report 20422396 (Version 3)
Quarter: 2022Q2

REPORT INFORMATION
  Report Type: Spontaneous
  Country: US (occurrence: US)
  Receive Date: 20220203
  Receipt Date: 20220520
  Transmission Date: 20220721
  Serious: Yes (Hospitalization, Other)
  Sender: FDA-Public Use
  Company Number: US-BIOVITRUM-2022US01495

PATIENT
  Age: 0 Year
  Sex: Male

DRUGS (11)
  1. SYNAGIS [Suspect]
     Active Substance: PALIVIZUMAB
     Indication: Premature baby
     Route: 030
     Dates: start: 202111
  2. SYNAGIS [Suspect]
     Active Substance: PALIVIZUMAB
     Indication: Bronchopulmonary dysplasia
     Dates: start: 20211222
  3. SYNAGIS [Suspect]
     Active Substance: PALIVIZUMAB
     Indication: Oxygen therapy
  4. AMOXICILLIN\CLAVULANIC ACID [Concomitant]
     Active Substance: AMOXICILLIN\CLAVULANIC ACID
  5. ALBUTEROL [Concomitant]
     Active Substance: ALBUTEROL
     Indication: Wheezing
  6. LANSOPRAZOLE [Concomitant]
     Active Substance: LANSOPRAZOLE
  7. MUPIROCIN [Concomitant]
     Active Substance: MUPIROCIN
     Indication: Skin irritation
     Route: 061
  8. PAEDIATRIC MULTIVITAMIN W/ IRON [Concomitant]
     Route: 048
  9. TRIAMCINOLONE [Concomitant]
     Active Substance: TRIAMCINOLONE
     Route: 061
  10. ZINC OXIDE TOP [Concomitant]
     Indication: Skin irritation
     Route: 061
  11. PREDNISOLONE SODIUM PHOSPHATE [Concomitant]
     Active Substance: PREDNISOLONE SODIUM PHOSPHATE
     Route: 048

REACTIONS (3)
  - Metapneumovirus infection [Unknown]
  - Respiratory distress [Unknown]
  - Metapneumovirus pneumonia [Unknown]

NARRATIVE: CASE EVENT DATE: 20220101
